FAERS Safety Report 5788506-4 (Version None)
Quarter: 2008Q2

REPORT INFORMATION
  Report Type: 
  Country: None (occurrence: None)
  Receive Date: 20080626
  Receipt Date: 20080617
  Transmission Date: 20081010
  Serious: Yes (Hospitalization)
  Sender: FDA-Public Use
  Company Number: US-BAYER-200826280NA

PATIENT
  Sex: Female

DRUGS (1)
  1. MIRENA [Suspect]
     Indication: CONTRACEPTION
     Route: 015
     Dates: start: 20080530, end: 20080616

REACTIONS (4)
  - IUCD COMPLICATION [None]
  - PELVIC PAIN [None]
  - UTERINE RUPTURE [None]
  - VAGINAL HAEMORRHAGE [None]
